FAERS Safety Report 21501155 (Version 3)
Quarter: 2023Q1

REPORT INFORMATION
  Report Type: Report from Study
  Country: US (occurrence: US)
  Receive Date: 20221025
  Receipt Date: 20230111
  Transmission Date: 20230418
  Serious: Yes (Hospitalization)
  Sender: FDA-Public Use
  Company Number: US-ABBVIE-4170425

PATIENT
  Sex: Male

DRUGS (4)
  1. SKYRIZI [Suspect]
     Active Substance: RISANKIZUMAB-RZAA
     Indication: Psoriasis
     Dosage: WEEK 0?FORM STRENGTH- 150 MILLIGRAM
     Route: 058
     Dates: start: 202105, end: 202105
  2. SKYRIZI [Suspect]
     Active Substance: RISANKIZUMAB-RZAA
     Dosage: WEEK 4?FORM STRENGTH- 150 MILLIGRAM?DRUG START DATE AND END DATE 2021
     Route: 058
  3. SKYRIZI [Suspect]
     Active Substance: RISANKIZUMAB-RZAA
     Dosage: FROM WEEK 12?FORM STRENGTH- 150 MILLIGRAM?DRUG START DATE 2021
     Route: 058
  4. SKYRIZI [Suspect]
     Active Substance: RISANKIZUMAB-RZAA
     Route: 058

REACTIONS (8)
  - Urinary tract obstruction [Recovered/Resolved]
  - Seasonal allergy [Unknown]
  - Psoriasis [Unknown]
  - Nephrolithiasis [Recovered/Resolved]
  - Therapeutic response shortened [Unknown]
  - Upper-airway cough syndrome [Unknown]
  - Loss of personal independence in daily activities [Unknown]
  - Laboratory test abnormal [Unknown]

NARRATIVE: CASE EVENT DATE: 20220101
